FAERS Safety Report 23470946 (Version 1)
Quarter: 2024Q1

REPORT INFORMATION
  Report Type: Report from Study
  Country: US (occurrence: US)
  Receive Date: 20240202
  Receipt Date: 20240202
  Transmission Date: 20240409
  Serious: Yes (Other)
  Sender: FDA-Public Use
  Company Number: US-JNJFOC-20231010631

PATIENT
  Sex: Female

DRUGS (2)
  1. SPRAVATO [Suspect]
     Active Substance: ESKETAMINE
     Indication: Depression
     Dosage: 56 MG, 1 DOSE
     Dates: start: 20231002, end: 20231002
  2. SPRAVATO [Suspect]
     Active Substance: ESKETAMINE
     Dosage: 56 MG, 8 DOSES
     Dates: start: 20231010, end: 20231108

REACTIONS (8)
  - Suicidal ideation [Unknown]
  - Self-injurious ideation [Unknown]
  - Confusional state [Unknown]
  - Discomfort [Unknown]
  - Anxiety [Unknown]
  - Negative thoughts [Unknown]
  - Crying [Unknown]
  - Boredom [Unknown]

NARRATIVE: CASE EVENT DATE: 20230101
